FAERS Safety Report 25529233 (Version 1)
Quarter: 2025Q3

REPORT INFORMATION
  Report Type: Spontaneous
  Country: US (occurrence: None)
  Receive Date: 20250708
  Receipt Date: 20250708
  Transmission Date: 20251021
  Serious: Yes (Disabling, Other)
  Sender: FDA-CTU
  Company Number: None

PATIENT
  Age: 50 Year
  Sex: Female
  Weight: 50.4 kg

DRUGS (5)
  1. SOFOSBUVIR\VELPATASVIR [Suspect]
     Active Substance: SOFOSBUVIR\VELPATASVIR
     Indication: Chronic hepatitis C
     Dosage: OTHER QUANTITY : 28 TABLET(S);?FREQUENCY : DAILY;?STRENGTH:  400MG/100MGMG?
     Route: 048
  2. SUBOXONE [Concomitant]
     Active Substance: BUPRENORPHINE HYDROCHLORIDE\NALOXONE HYDROCHLORIDE
  3. ADDERALL [Concomitant]
     Active Substance: AMPHETAMINE ASPARTATE\AMPHETAMINE SULFATE\DEXTROAMPHETAMINE SACCHARATE\DEXTROAMPHETAMINE SULFATE
  4. IBUPROFEN [Concomitant]
     Active Substance: IBUPROFEN
  5. One A Day VitaCraves Woman^s Gummies [Concomitant]

REACTIONS (6)
  - Muscle spasms [None]
  - Sleep disorder [None]
  - Neuropathy peripheral [None]
  - Burning sensation [None]
  - Paraesthesia [None]
  - Impaired work ability [None]

NARRATIVE: CASE EVENT DATE: 20250501
